FAERS Safety Report 14896380 (Version 1)
Quarter: 2018Q2

REPORT INFORMATION
  Report Type: Spontaneous
  Country: US (occurrence: US)
  Receive Date: 20180515
  Receipt Date: 20180515
  Transmission Date: 20180711
  Serious: No
  Sender: FDA-Public Use
  Company Number: US-TAIHO ONCOLOGY INC-EU-2018-00606

PATIENT
  Age: 76 Year
  Sex: Male
  Weight: 81.27 kg

DRUGS (10)
  1. LYRICA [Concomitant]
     Active Substance: PREGABALIN
     Dosage: NI
  2. ZINC. [Concomitant]
     Active Substance: ZINC
     Dosage: NI
  3. XARELTO [Concomitant]
     Active Substance: RIVAROXABAN
     Dosage: NI
  4. SALMON OIL [Concomitant]
     Active Substance: FISH OIL
     Dosage: NI
  5. GLUCOSAMINE [Concomitant]
     Active Substance: GLUCOSAMINE
     Dosage: NI
  6. IRON [Concomitant]
     Active Substance: IRON
     Dosage: NI
  7. STIVARGA [Concomitant]
     Active Substance: REGORAFENIB
     Dosage: NI
  8. LONSURF [Suspect]
     Active Substance: TIPIRACIL HYDROCHLORIDE\TRIFLURIDINE
     Indication: COLON CANCER
     Dosage: CYCLE 6
     Route: 048
     Dates: start: 20180103, end: 20180409
  9. TYLENOL [Concomitant]
     Active Substance: ACETAMINOPHEN
     Dosage: NI
  10. TOCOPHEROL/FISH OIL [Concomitant]
     Dosage: NI

REACTIONS (1)
  - Disease progression [Unknown]

NARRATIVE: CASE EVENT DATE: 20180330
